FAERS Safety Report 8807911 (Version 1)
Quarter: 2012Q4

REPORT INFORMATION
  Report Type: 
  Country: JP (occurrence: JP)
  Receive Date: 20120925
  Receipt Date: 20120925
  Transmission Date: 20130627
  Serious: No
  Sender: FDA-Public Use
  Company Number: PHHY2012JP083192

PATIENT
  Sex: Male

DRUGS (1)
  1. LAMISIL [Suspect]
     Dates: start: 201209

REACTIONS (1)
  - Expired drug administered [Unknown]
